FAERS Safety Report 21013576 (Version 1)
Quarter: 2022Q2

REPORT INFORMATION
  Report Type: Spontaneous
  Country: US (occurrence: US)
  Receive Date: 20220627
  Receipt Date: 20220627
  Transmission Date: 20220721
  Serious: No
  Sender: FDA-Public Use
  Company Number: US-SA-SAC20220621001935

PATIENT
  Age: 74 Year
  Sex: Female

DRUGS (9)
  1. DUPIXENT [Suspect]
     Active Substance: DUPILUMAB
     Indication: Dermatitis atopic
     Dosage: 300 MG, QOW
     Route: 058
  2. ADALIMUMAB [Suspect]
     Active Substance: ADALIMUMAB
     Dosage: UNK
     Dates: start: 20220609
  3. PREDNISONE [Concomitant]
     Active Substance: PREDNISONE
  4. VITAMIN C [Concomitant]
     Active Substance: ASCORBIC ACID
  5. VITAMIN D NOS [Concomitant]
     Active Substance: VITAMIN D NOS
  6. ALBUTEROL SULFATE [Concomitant]
     Active Substance: ALBUTEROL SULFATE
  7. TRELEGY ELLIPTA [Concomitant]
     Active Substance: FLUTICASONE FUROATE\UMECLIDINIUM BROMIDE\VILANTEROL TRIFENATATE
  8. MAGNESIUM [Concomitant]
     Active Substance: MAGNESIUM
  9. VITAMINS NOS [Concomitant]
     Active Substance: VITAMINS

REACTIONS (6)
  - Rash macular [Recovering/Resolving]
  - Rash [Recovered/Resolved]
  - Peripheral swelling [Recovering/Resolving]
  - Discharge [Recovering/Resolving]
  - Skin hypertrophy [Recovering/Resolving]
  - Skin laceration [Recovering/Resolving]

NARRATIVE: CASE EVENT DATE: 20220601
